FAERS Safety Report 4410485-2 (Version None)
Quarter: 2004Q3

REPORT INFORMATION
  Report Type: 
  Country: None (occurrence: None)
  Receive Date: 20040726
  Receipt Date: 20040712
  Transmission Date: 20050211
  Serious: Yes (Hospitalization)
  Sender: FDA-Public Use
  Company Number: 2004047177

PATIENT
  Age: 83 Year
  Sex: Female

DRUGS (5)
  1. LIPITOR [Suspect]
     Indication: ILL-DEFINED DISORDER
     Dosage: 5 MG (1 IN 1 D), ORAL
     Route: 048
     Dates: start: 20040225
  2. IBUDILAST (IBUDILAST) [Concomitant]
  3. ITOPRIDE HYDROCHLORIDE (ITOPRIDE HYDROCHLORIDE) [Concomitant]
  4. TEPRENONE (TEPRENONE) [Concomitant]
  5. ACETYLSALICYLIC ACID (ACETAYLSALICYLIC ACID) [Concomitant]

REACTIONS (4)
  - ALANINE AMINOTRANSFERASE INCREASED [None]
  - ANOREXIA [None]
  - ASPARTATE AMINOTRANSFERASE INCREASED [None]
  - LIVER DISORDER [None]
